FAERS Safety Report 24849859 (Version 1)
Quarter: 2025Q1

REPORT INFORMATION
  Report Type: Spontaneous
  Country: NL (occurrence: NL)
  Receive Date: 20250116
  Receipt Date: 20250116
  Transmission Date: 20250408
  Serious: Yes (Death, Other)
  Sender: NOVA LABORATORIES LIMITED
  Company Number: NL-Nova Laboratories Limited-2169183

PATIENT
  Age: 4 Year
  Sex: Male
  Weight: 20.00 kg

DRUGS (1)
  1. PURIXAN [Suspect]
     Active Substance: MERCAPTOPURINE
     Indication: Acute lymphocytic leukaemia

REACTIONS (4)
  - Disease complication [Fatal]
  - Acute lymphocytic leukaemia [Fatal]
  - Hyperkalaemia [Fatal]
  - Anaemia [Fatal]

NARRATIVE: CASE EVENT DATE: 20240415
